FAERS Safety Report 9314821 (Version 1)
Quarter: 2013Q2

REPORT INFORMATION
  Report Type: Report from Study
  Country: US (occurrence: US)
  Receive Date: 20130529
  Receipt Date: 20130529
  Transmission Date: 20140414
  Serious: Yes (Other)
  Sender: FDA-Public Use
  Company Number: US-ROCHE-1228934

PATIENT
  Sex: 0

DRUGS (4)
  1. RITUXIMAB [Suspect]
     Indication: CHRONIC LYMPHOCYTIC LEUKAEMIA
     Dosage: FOR 8 CYCLES
     Route: 065
  2. RITUXIMAB [Suspect]
     Indication: LYMPHOCYTIC LYMPHOMA
  3. CAL-101 (PI3K DELTA INHIBITOR) [Suspect]
     Indication: CHRONIC LYMPHOCYTIC LEUKAEMIA
     Dosage: CONTINUOUSLY FOR 48 WEEKS (PRIMARY STUDY)
     Route: 065
  4. CAL-101 (PI3K DELTA INHIBITOR) [Suspect]
     Indication: LYMPHOCYTIC LYMPHOMA

REACTIONS (8)
  - Diarrhoea [Unknown]
  - Colitis [Unknown]
  - Pyrexia [Unknown]
  - Fatigue [Unknown]
  - Rash [Unknown]
  - Pneumonia [Unknown]
  - Alanine aminotransferase increased [Unknown]
  - Aspartate aminotransferase increased [Unknown]
